FAERS Safety Report 5199625-8 (Version None)
Quarter: 2007Q1

REPORT INFORMATION
  Report Type: 
  Country: None (occurrence: None)
  Receive Date: 20070102
  Receipt Date: 20070102
  Transmission Date: 20070707
  Serious: Yes (Hospitalization, Disabling)
  Sender: FDA-Public Use
  Company Number: None

PATIENT
  Age: 86 Year
  Sex: Male
  Weight: 89 kg

DRUGS (10)
  1. CLINDAMYCIN [Suspect]
     Indication: CELLULITIS
     Dosage: 300 MG Q6H PO
     Route: 048
     Dates: start: 20061122, end: 20061202
  2. ATENOLOL [Concomitant]
  3. CITALOPRAM HYDROBROMIDE [Concomitant]
  4. FUROSEMIDE [Concomitant]
  5. GLYBURIDE [Concomitant]
  6. HYDROCORTISONE 1% OINTMENT [Concomitant]
  7. HYDROXYZINE PAMOATE [Concomitant]
  8. LORATADINE [Concomitant]
  9. OMEPRAZOLE [Concomitant]
  10. TERAZOSIN HCL [Concomitant]

REACTIONS (2)
  - DYSPHAGIA [None]
  - ODYNOPHAGIA [None]
